FAERS Safety Report 14879734 (Version 1)
Quarter: 2018Q2

REPORT INFORMATION
  Report Type: Report from Study
  Country: US (occurrence: US)
  Receive Date: 20180511
  Receipt Date: 20180511
  Transmission Date: 20180711
  Serious: Yes (Hospitalization)
  Sender: FDA-Public Use
  Company Number: US-JNJFOC-20180344046

PATIENT
  Age: 38 Year
  Sex: Female

DRUGS (26)
  1. IMBRUVICA [Suspect]
     Active Substance: IBRUTINIB
     Indication: DIFFUSE LARGE B-CELL LYMPHOMA
     Route: 048
     Dates: start: 20180307
  2. FLEXERIL [Concomitant]
     Active Substance: CYCLOBENZAPRINE HYDROCHLORIDE
  3. ALLOPURINOL. [Concomitant]
     Active Substance: ALLOPURINOL
  4. CHLORHEXIDINE [Concomitant]
     Active Substance: CHLORHEXIDINE
  5. CYTARABINE. [Concomitant]
     Active Substance: CYTARABINE
  6. DECADRON [Concomitant]
     Active Substance: DEXAMETHASONE
  7. BENADRYL [Concomitant]
     Active Substance: DIPHENHYDRAMINE HYDROCHLORIDE
  8. OXYCODONE [Concomitant]
     Active Substance: OXYCODONE
  9. COMPAZINE [Concomitant]
     Active Substance: PROCHLORPERAZINE MALEATE
  10. DOXYCYCLINE HYDROCHLORIDE [Concomitant]
     Active Substance: DOXYCYCLINE HYDROCHLORIDE
  11. TYLENOL [Concomitant]
     Active Substance: ACETAMINOPHEN
  12. COLACE [Concomitant]
     Active Substance: DOCUSATE SODIUM
  13. CYMBALTA [Concomitant]
     Active Substance: DULOXETINE HYDROCHLORIDE
  14. CLARITIN [Concomitant]
     Active Substance: LORATADINE
  15. DEMEROL [Concomitant]
     Active Substance: MEPERIDINE HYDROCHLORIDE
  16. DOLOPHINE [Concomitant]
     Active Substance: METHADONE HYDROCHLORIDE
  17. TEMODAR [Concomitant]
     Active Substance: TEMOZOLOMIDE
  18. ACYCLOVIR. [Concomitant]
     Active Substance: ACYCLOVIR
  19. EPINEPHRINE. [Concomitant]
     Active Substance: EPINEPHRINE
  20. VEPESID [Concomitant]
     Active Substance: ETOPOSIDE
  21. SENOKOT [Concomitant]
     Active Substance: SENNOSIDES
  22. RITUXAN [Concomitant]
     Active Substance: RITUXIMAB
  23. PEPCID [Concomitant]
     Active Substance: FAMOTIDINE
  24. NEURONTIN [Concomitant]
     Active Substance: GABAPENTIN
  25. ZOFRAN [Concomitant]
     Active Substance: ONDANSETRON HYDROCHLORIDE
  26. IMBRUVICA [Suspect]
     Active Substance: IBRUTINIB
     Indication: DIFFUSE LARGE B-CELL LYMPHOMA
     Route: 048
     Dates: start: 20180309

REACTIONS (5)
  - Abdominal discomfort [Unknown]
  - Off label use [Unknown]
  - Ulcer [Unknown]
  - Product use in unapproved indication [Unknown]
  - Hypoaesthesia [Unknown]

NARRATIVE: CASE EVENT DATE: 20180307
